FAERS Safety Report 16781111 (Version 1)
Quarter: 2019Q3

REPORT INFORMATION
  Report Type: Spontaneous
  Country: JP (occurrence: JP)
  Receive Date: 20190906
  Receipt Date: 20190906
  Transmission Date: 20191005
  Serious: Yes (Death)
  Sender: FDA-Public Use
  Company Number: JP-PFIZER INC-2019382636

PATIENT

DRUGS (1)
  1. ANAEMETRO [Suspect]
     Active Substance: METRONIDAZOLE
     Dosage: UNK

REACTIONS (2)
  - Condition aggravated [Fatal]
  - Therapeutic response decreased [Unknown]
